FAERS Safety Report 5016189-X (Version None)
Quarter: 2006Q2

REPORT INFORMATION
  Report Type: 
  Country: None (occurrence: None)
  Receive Date: 20060414
  Receipt Date: 20060211
  Transmission Date: 20061013
  Serious: No
  Sender: FDA-Public Use
  Company Number: 2006SP000744

PATIENT
  Age: 75 Year
  Sex: Female
  Weight: 92.5338 kg

DRUGS (7)
  1. LUNESTA [Suspect]
     Indication: INSOMNIA
     Dosage: 2 MG;HS;ORAL
     Route: 048
     Dates: start: 20060109, end: 20060212
  2. AVANDIA [Concomitant]
  3. TYLENOL (CAPLET) [Concomitant]
  4. PAXIL [Concomitant]
  5. GLIPIZIDE [Concomitant]
  6. LISINOPRIL [Concomitant]
  7. ATORVASTATIN CALCIUM [Concomitant]

REACTIONS (3)
  - HEADACHE [None]
  - INSOMNIA [None]
  - SOMNOLENCE [None]
